FAERS Safety Report 10162613 (Version 2)
Quarter: 2014Q3

REPORT INFORMATION
  Report Type: Spontaneous
  Country: US (occurrence: US)
  Receive Date: 20140509
  Receipt Date: 20140805
  Transmission Date: 20150326
  Serious: No
  Sender: FDA-Public Use
  Company Number: US-009507513-1404USA015460

PATIENT
  Age: 54 Year
  Sex: Female
  Weight: 66.67 kg

DRUGS (4)
  1. NOXAFIL [Suspect]
     Active Substance: POSACONAZOLE
     Indication: COCCIDIOIDOMYCOSIS
     Dosage: 400 MG, BID
     Route: 048
     Dates: start: 20140328, end: 20140411
  2. ACYCLOVIR. [Concomitant]
     Active Substance: ACYCLOVIR
     Dosage: 400 MG, BID
  3. PROZAC [Concomitant]
     Active Substance: FLUOXETINE HYDROCHLORIDE
     Dosage: 20 MG, QD
  4. IBUPROFEN. [Concomitant]
     Active Substance: IBUPROFEN
     Dosage: OCCASIONAL

REACTIONS (2)
  - Drug dose omission [Unknown]
  - Blood potassium decreased [Recovered/Resolved]

NARRATIVE: CASE EVENT DATE: 20140328
